FAERS Safety Report 22930091 (Version 5)
Quarter: 2023Q4

REPORT INFORMATION
  Report Type: Spontaneous
  Country: US (occurrence: US)
  Receive Date: 20230911
  Receipt Date: 20231120
  Transmission Date: 20240110
  Serious: Yes (Other)
  Sender: FDA-Public Use
  Company Number: US-PFIZER INC-PV202300152526

PATIENT
  Age: 83 Year
  Sex: Female

DRUGS (1)
  1. LORBRENA [Suspect]
     Active Substance: LORLATINIB
     Dosage: 25 MG, 1X/DAY (1 TABLET) BY MOUTH DAILY
     Route: 048

REACTIONS (3)
  - Neuropathy peripheral [Unknown]
  - Cognitive disorder [Unknown]
  - Off label use [Unknown]
